FAERS Safety Report 14768537 (Version 1)
Quarter: 2018Q2

REPORT INFORMATION
  Report Type: Spontaneous
  Country: US (occurrence: US)
  Receive Date: 20180410
  Receipt Date: 20180410
  Transmission Date: 20180711
  Serious: No
  Sender: FDA-Public Use
  Company Number: None

PATIENT
  Age: 47 Year
  Sex: Female

DRUGS (1)
  1. HYDROXYCHLOROQUINE 200MG [Suspect]
     Active Substance: HYDROXYCHLOROQUINE
     Indication: UNDIFFERENTIATED CONNECTIVE TISSUE DISEASE
     Dosage: 10/2018-01/2018
     Route: 048

REACTIONS (3)
  - Gastrointestinal disorder [None]
  - Alopecia [None]
  - Diarrhoea [None]

NARRATIVE: CASE EVENT DATE: 201802
